FAERS Safety Report 5615227-0 (Version None)
Quarter: 2008Q1

REPORT INFORMATION
  Report Type: 
  Country: None (occurrence: None)
  Receive Date: 20080206
  Receipt Date: 20080130
  Transmission Date: 20080703
  Serious: Yes (Hospitalization, Disabling)
  Sender: FDA-Public Use
  Company Number: CA-AVENTIS-200720889GDDC

PATIENT
  Age: 65 Year
  Sex: Female

DRUGS (10)
  1. ARAVA [Suspect]
     Indication: RHEUMATOID ARTHRITIS
     Route: 048
     Dates: start: 20050401, end: 20070201
  2. LOVASTATIN [Concomitant]
     Dosage: DOSE: UNK
     Route: 048
  3. VASOTEC                            /00935901/ [Concomitant]
     Dosage: DOSE: UNK
     Route: 048
  4. HYDROCHLOROTHIAZIDE [Concomitant]
     Dosage: DOSE: UNK
     Route: 048
  5. METFORMIN HCL [Concomitant]
     Dosage: DOSE: UNK
     Route: 048
  6. FOLIC ACID [Concomitant]
     Dosage: DOSE: UNK
     Route: 048
  7. ASPIRIN [Concomitant]
     Dosage: DOSE: UNK
     Route: 048
  8. GLYBURIDE [Concomitant]
     Dosage: DOSE: UNK
     Route: 048
  9. METHOTREXATE [Concomitant]
     Indication: RHEUMATOID ARTHRITIS
     Dosage: DOSE: UNK
     Dates: start: 20020101, end: 20050101
  10. METHOTREXATE [Concomitant]
     Dosage: DOSE: UNK
     Dates: start: 20070201

REACTIONS (2)
  - DYSPNOEA [None]
  - PULMONARY HYPERTENSION [None]
